FAERS Safety Report 4356692-9 (Version None)
Quarter: 2004Q2

REPORT INFORMATION
  Report Type: 
  Country: None (occurrence: None)
  Receive Date: 20040511
  Receipt Date: 20040511
  Transmission Date: 20050107
  Serious: Yes (Life-Threatening, Hospitalization)
  Sender: FDA-Public Use
  Company Number: None

PATIENT
  Sex: Male
  Weight: 99.7913 kg

DRUGS (1)
  1. TAXOL [Suspect]

REACTIONS (5)
  - ARTERY DISSECTION [None]
  - CORONARY ARTERY REOCCLUSION [None]
  - DEVICE FAILURE [None]
  - IATROGENIC INJURY [None]
  - SURGICAL PROCEDURE REPEATED [None]
